FAERS Safety Report 8715576 (Version 2)
Quarter: 2013Q1

REPORT INFORMATION
  Report Type: Spontaneous
  Country: US (occurrence: US)
  Receive Date: 20120809
  Receipt Date: 20130208
  Transmission Date: 20140127
  Serious: Yes (Life-Threatening, Hospitalization)
  Sender: FDA-Public Use
  Company Number: US-BRISTOL-MYERS SQUIBB COMPANY-16824765

PATIENT
  Age: 67 Year
  Sex: Female

DRUGS (2)
  1. COUMADIN [Suspect]
     Route: 065
  2. LETAIRIS [Suspect]
     Indication: PULMONARY HYPERTENSION
     Dosage: TABS.
     Route: 048
     Dates: start: 20120111, end: 20121217

REACTIONS (2)
  - Pneumonia [Unknown]
  - Renal disorder [Unknown]
